FAERS Safety Report 7781197-2 (Version None)
Quarter: 2011Q3

REPORT INFORMATION
  Report Type: 
  Country: None (occurrence: None)
  Receive Date: 20110927
  Receipt Date: 20110920
  Transmission Date: 20111222
  Serious: Yes (Death, Other)
  Sender: FDA-Public Use
  Company Number: US-CEPHALON-2009005629

PATIENT

DRUGS (3)
  1. ASCORBIC ACID [Suspect]
     Indication: MULTIPLE MYELOMA
  2. TRISENOX [Suspect]
     Indication: MULTIPLE MYELOMA
     Route: 041
  3. VELCADE [Suspect]

REACTIONS (22)
  - DYSPNOEA [None]
  - BLOOD CREATININE ABNORMAL [None]
  - BLOOD ALKALINE PHOSPHATASE ABNORMAL [None]
  - ASPARTATE AMINOTRANSFERASE ABNORMAL [None]
  - WOUND COMPLICATION [None]
  - TENDERNESS [None]
  - STAPHYLOCOCCAL INFECTION [None]
  - HYPERGLYCAEMIA [None]
  - HAEMATOMA [None]
  - HYPERSOMNIA [None]
  - MULTIPLE MYELOMA [None]
  - FATIGUE [None]
  - COGNITIVE DISORDER [None]
  - HYPERCALCAEMIA [None]
  - HAEMOGLOBIN ABNORMAL [None]
  - BACK PAIN [None]
  - DIARRHOEA [None]
  - MUCOSAL INFLAMMATION [None]
  - STOMATITIS [None]
  - PAIN [None]
  - DECREASED APPETITE [None]
  - FLANK PAIN [None]
